FAERS Safety Report 24527193 (Version 1)
Quarter: 2024Q4

REPORT INFORMATION
  Report Type: Spontaneous
  Country: ES (occurrence: ES)
  Receive Date: 20241021
  Receipt Date: 20241021
  Transmission Date: 20250115
  Serious: Yes (Other)
  Sender: GLAXOSMITHKLINE
  Company Number: ES-GSK-ES2024GSK127185

PATIENT

DRUGS (6)
  1. BUPROPION [Suspect]
     Active Substance: BUPROPION
     Indication: Psychotic behaviour
     Dosage: 150 MG
  2. BUPROPION [Suspect]
     Active Substance: BUPROPION
     Indication: Anorexia nervosa
  3. DIAZEPAM [Suspect]
     Active Substance: DIAZEPAM
     Indication: Anorexia nervosa
     Dosage: 2.5 MG
  4. DIAZEPAM [Suspect]
     Active Substance: DIAZEPAM
     Indication: Psychotic behaviour
  5. LORMETAZEPAM [Suspect]
     Active Substance: LORMETAZEPAM
     Indication: Psychotic behaviour
     Dosage: 1 MG
  6. LORMETAZEPAM [Suspect]
     Active Substance: LORMETAZEPAM
     Indication: Anorexia nervosa

REACTIONS (3)
  - Abortion spontaneous [Unknown]
  - Exposure during pregnancy [Unknown]
  - Therapy cessation [Unknown]
